FAERS Safety Report 7062116-3 (Version None)
Quarter: 2010Q4

REPORT INFORMATION
  Report Type: 
  Country: None (occurrence: None)
  Receive Date: 20101026
  Receipt Date: 20101013
  Transmission Date: 20110411
  Serious: Yes (Other)
  Sender: FDA-Public Use
  Company Number: PHHY2010US64050

PATIENT
  Sex: Male
  Weight: 92.517 kg

DRUGS (6)
  1. AFINITOR [Suspect]
     Indication: CARCINOID TUMOUR
     Dosage: 10 MG / DAILY
     Route: 048
     Dates: start: 20100607
  2. IBUPROFEN [Concomitant]
     Indication: PAIN
     Dosage: 600 UNK, TID
     Dates: start: 20100211
  3. ZOPAN [Concomitant]
     Indication: NAUSEA
     Dosage: 8 UNK, TID
     Route: 048
     Dates: start: 20100211
  4. PHENERGAN [Concomitant]
     Dosage: 12.5 UNK, UNK
     Dates: start: 20100211
  5. SANDOSTATIN [Concomitant]
     Indication: CARCINOID SYNDROME
     Dosage: 30 MG, QMO
     Route: 030
     Dates: start: 20010109
  6. MEDROL [Concomitant]

REACTIONS (1)
  - ARTERITIS [None]
